FAERS Safety Report 16468583 (Version 1)
Quarter: 2019Q3

REPORT INFORMATION
  Report Type: Spontaneous
  Country: US (occurrence: US)
  Receive Date: 20190621
  Receipt Date: 20190621
  Transmission Date: 20191004
  Serious: Yes (Other)
  Sender: FDA-Public Use
  Company Number: None

PATIENT
  Age: 59 Year
  Sex: Male
  Weight: 98.1 kg

DRUGS (1)
  1. SOMADERM TRANSDERMAL [Suspect]
     Active Substance: HOMEOPATHICS
     Indication: INSOMNIA
     Dosage: ?          QUANTITY:1 1 PUMP;?
     Route: 061

REACTIONS (1)
  - Muscle spasms [None]

NARRATIVE: CASE EVENT DATE: 20190607
